FAERS Safety Report 18244256 (Version 1)
Quarter: 2020Q3

REPORT INFORMATION
  Report Type: Spontaneous
  Country: IT (occurrence: IT)
  Receive Date: 20200909
  Receipt Date: 20200909
  Transmission Date: 20201103
  Serious: Yes (Hospitalization, Other)
  Sender: FDA-Public Use
  Company Number: IT-SUN PHARMACEUTICAL INDUSTRIES LTD-2020RR-259465

PATIENT
  Age: 51 Year
  Sex: Female

DRUGS (3)
  1. VENLAFAXINE [Suspect]
     Active Substance: VENLAFAXINE HYDROCHLORIDE
     Indication: MENTAL DISORDER
     Dosage: 3300 MILLIGRAM, IN TOTAL
     Route: 048
     Dates: start: 20200804, end: 20200804
  2. TRIAZOLAM. [Suspect]
     Active Substance: TRIAZOLAM
     Indication: MENTAL DISORDER
  3. TRIAZOLAM. [Suspect]
     Active Substance: TRIAZOLAM
     Indication: MENTAL DISORDER
     Dosage: 45 DOSAGE FORM, IN TOTAL
     Route: 048
     Dates: start: 20200804, end: 20200804

REACTIONS (4)
  - Sopor [Recovering/Resolving]
  - Toxicity to various agents [Recovering/Resolving]
  - Suicide attempt [Recovering/Resolving]
  - Intentional overdose [Recovering/Resolving]

NARRATIVE: CASE EVENT DATE: 20200804
